FAERS Safety Report 22631330 (Version 5)
Quarter: 2023Q2

REPORT INFORMATION
  Report Type: Report from Study
  Country: US (occurrence: US)
  Receive Date: 20230623
  Receipt Date: 20230630
  Transmission Date: 20230722
  Serious: No
  Sender: FDA-Public Use
  Company Number: US-002147023-NVSC2023US140888

PATIENT
  Sex: Male

DRUGS (1)
  1. ENTRESTO [Suspect]
     Active Substance: SACUBITRIL\VALSARTAN
     Indication: Product used for unknown indication
     Route: 065

REACTIONS (6)
  - Memory impairment [Unknown]
  - Thyroid disorder [Unknown]
  - Cerebral disorder [Unknown]
  - Accidental exposure to product [Unknown]
  - Oropharyngeal pain [Recovering/Resolving]
  - Headache [Recovering/Resolving]
